FAERS Safety Report 10181822 (Version 1)
Quarter: 2014Q2

REPORT INFORMATION
  Report Type: Spontaneous
  Country: FR (occurrence: FR)
  Receive Date: 20140519
  Receipt Date: 20140519
  Transmission Date: 20141212
  Serious: Yes (Hospitalization)
  Sender: FDA-Public Use
  Company Number: FR-009507513-1405FRA007656

PATIENT
  Age: 80 Year
  Sex: Male

DRUGS (14)
  1. ESMERON [Suspect]
     Indication: ANAESTHESIA
     Dosage: UNK
     Route: 042
     Dates: start: 20121211, end: 20121211
  2. ASPEGIC ENFANT [Suspect]
     Dosage: UNK
     Dates: start: 20121010
  3. EXACYL [Suspect]
     Indication: HAEMORRHAGE PROPHYLAXIS
     Dosage: UNK, ONCE
     Route: 042
     Dates: start: 20121211, end: 20121211
  4. HYPNOMIDATE [Suspect]
     Indication: ANAESTHESIA
     Dosage: UNK, ONCE
     Route: 042
     Dates: start: 20121211, end: 20121211
  5. PROTAMINE SULFATE [Suspect]
     Dosage: UNK
     Route: 042
     Dates: start: 20121211, end: 20121211
  6. ULTIVA [Suspect]
     Indication: ANAESTHESIA
     Dosage: UNK, ONCE
     Route: 042
     Dates: start: 20121211, end: 20121211
  7. SUFENTANIL MYLAN [Suspect]
     Indication: ANAESTHESIA
     Dosage: UNK, ONCE
     Route: 042
     Dates: start: 20121211, end: 20121211
  8. ZINNAT [Suspect]
     Dosage: UNK, ONCE
     Route: 042
     Dates: start: 20121211, end: 20121211
  9. PROPOFOL LIPURO [Suspect]
     Indication: ANAESTHESIA
     Dosage: UNK, ONCE
     Route: 042
     Dates: start: 20121211, end: 20121211
  10. ZYLORIC [Concomitant]
     Indication: HYPERURICAEMIA
     Dosage: UNK
     Route: 048
  11. GAVISCON (ALGINIC ACID (+) ALUMINUM HYDROXIDE (+) MAGNESIUM TRISILICAT [Concomitant]
     Dosage: UNK
     Route: 048
  12. AMLOR [Concomitant]
     Dosage: UNK
     Route: 048
  13. TAHOR [Concomitant]
     Dosage: UNK
  14. ATARAX (HYDROXYZINE HYDROCHLORIDE) [Suspect]
     Dosage: 100 MG, BID
     Route: 048
     Dates: start: 20121210, end: 20121210

REACTIONS (2)
  - Post procedural haemorrhage [Recovered/Resolved]
  - Post procedural haemorrhage [Recovered/Resolved]
